FAERS Safety Report 12611893 (Version 2)
Quarter: 2016Q3

REPORT INFORMATION
  Report Type: Spontaneous
  Country: US (occurrence: US)
  Receive Date: 20160801
  Receipt Date: 20160912
  Transmission Date: 20161109
  Serious: Yes (Hospitalization)
  Sender: FDA-Public Use
  Company Number: US-PFIZER INC-3070953

PATIENT
  Age: 18 Year
  Sex: Female
  Weight: 64.4 kg

DRUGS (6)
  1. DOXORUBICIN [Suspect]
     Active Substance: DOXORUBICIN
     Indication: ANAPLASTIC LARGE CELL LYMPHOMA T- AND NULL-CELL TYPES
     Dosage: 25 MG/M2, COURSE B, OVER 1-15 MIN ON DAYS 4 AND 5, FREQ: CYCLICAL
     Route: 042
     Dates: start: 20150827, end: 20150829
  2. METHOTREXATE SODIUM. [Suspect]
     Active Substance: METHOTREXATE SODIUM
     Indication: ANAPLASTIC LARGE CELL LYMPHOMA T- AND NULL-CELL TYPES
     Dosage: COURSE A/B:3000 MG/M2, FREQ: CYCLICAL
     Route: 042
     Dates: start: 20150824, end: 20150824
  3. DEXAMETHASONE. [Suspect]
     Active Substance: DEXAMETHASONE
     Indication: ANAPLASTIC LARGE CELL LYMPHOMA T- AND NULL-CELL TYPES
     Dosage: 5 MG/M2, PROPHASE/ COURSE A/B, FREQ: CYCLICAL
     Route: 048
     Dates: start: 20150824, end: 20150828
  4. CRIZOTINIB [Suspect]
     Active Substance: CRIZOTINIB
     Indication: ANAPLASTIC LARGE CELL LYMPHOMA T- AND NULL-CELL TYPES
     Dosage: 165 MG/M2, COURSE A/B BID ON DAYS 1-21 , FREQ: CYCLICAL
     Route: 048
     Dates: start: 20150824
  5. METHOTREXATE SODIUM. [Suspect]
     Active Substance: METHOTREXATE SODIUM
     Dosage: PROPHASE: 7.5-12MG, FREQ: CYCLICAL
     Route: 037
     Dates: start: 20150824, end: 20150824
  6. CYCLOPHOSPHAMIDE. [Suspect]
     Active Substance: CYCLOPHOSPHAMIDE
     Indication: ANAPLASTIC LARGE CELL LYMPHOMA T- AND NULL-CELL TYPES
     Dosage: 200 MG/M2, PROPHASE/COURSE B, OVER 15-30 MINUTES, FREQ: CYCLICAL
     Route: 042
     Dates: start: 20150824, end: 20150828

REACTIONS (2)
  - Stomatitis [Recovered/Resolved with Sequelae]
  - Febrile neutropenia [Unknown]

NARRATIVE: CASE EVENT DATE: 20150908
